FAERS Safety Report 22010726 (Version 1)
Quarter: 2023Q1

REPORT INFORMATION
  Report Type: Spontaneous
  Country: FR (occurrence: FR)
  Receive Date: 20230220
  Receipt Date: 20230220
  Transmission Date: 20230417
  Serious: Yes (Hospitalization, Other)
  Sender: FDA-Public Use
  Company Number: None

PATIENT
  Age: 77 Year
  Sex: Female

DRUGS (1)
  1. OPDIVO [Suspect]
     Active Substance: NIVOLUMAB
     Indication: Malignant melanoma
     Dosage: CUMULATIVE DOSE- 4760 MG
     Route: 042
     Dates: start: 20190822, end: 20190912

REACTIONS (1)
  - Hepatic cytolysis [Recovered/Resolved with Sequelae]

NARRATIVE: CASE EVENT DATE: 20190916
